FAERS Safety Report 6377320-7 (Version None)
Quarter: 2009Q3

REPORT INFORMATION
  Report Type: 
  Country: None (occurrence: None)
  Receive Date: 20090923
  Receipt Date: 20090923
  Transmission Date: 20100115
  Serious: No
  Sender: FDA-Public Use
  Company Number: None

PATIENT
  Age: 64 Year
  Sex: Female

DRUGS (7)
  1. REPAGLINIDE [Suspect]
     Indication: TYPE 2 DIABETES MELLITUS
     Dosage: 4MG PO TID WEEKS
     Route: 048
     Dates: start: 20090712, end: 20090714
  2. HEPARIN [Concomitant]
  3. RAMITIDINE [Concomitant]
  4. LEVOTHYROXINE SODIUM [Concomitant]
  5. SERTRALINE HYDROCHLORIDE [Concomitant]
  6. PREDNISONE [Concomitant]
  7. TACROLIMUS [Concomitant]

REACTIONS (3)
  - FEELING JITTERY [None]
  - HYPOGLYCAEMIA [None]
  - NAUSEA [None]
